FAERS Safety Report 5043173-2 (Version None)
Quarter: 2006Q2

REPORT INFORMATION
  Report Type: 
  Country: None (occurrence: None)
  Receive Date: 20060628
  Receipt Date: 20060613
  Transmission Date: 20061013
  Serious: No
  Sender: FDA-Public Use
  Company Number: 2006S1005503

PATIENT
  Age: 70 Year
  Sex: Male
  Weight: 90.7194 kg

DRUGS (6)
  1. FENTANYL TRANSDERMAL SYSTEM [Suspect]
     Indication: CANCER PAIN
     Dosage: 25 UG/HR; Q3D; TRANS
     Route: 062
     Dates: start: 20060520
  2. DUTASTERIDE [Concomitant]
  3. HYDROMORPHONE HCL [Concomitant]
  4. GABAPENTIN [Concomitant]
  5. TERAZOSIN HYDROCHLORIDE [Concomitant]
  6. RABEPRAZOLE SODIUM [Concomitant]

REACTIONS (2)
  - DYSPNOEA [None]
  - THROMBOSIS [None]
